FAERS Safety Report 10675192 (Version 1)
Quarter: 2014Q4

REPORT INFORMATION
  Report Type: Spontaneous
  Country: GB (occurrence: GB)
  Receive Date: 20141224
  Receipt Date: 20141224
  Transmission Date: 20150529
  Serious: Yes (Other)
  Sender: FDA-Public Use
  Company Number: GB-UCBSA-2014022409

PATIENT
  Sex: Female

DRUGS (1)
  1. CIMZIA [Suspect]
     Active Substance: CERTOLIZUMAB PEGOL
     Indication: RHEUMATOID ARTHRITIS
     Dosage: 200 MG, EV 2 WEEKS(QOW) (FORTNIGHTLY)
     Route: 058
     Dates: start: 201203

REACTIONS (10)
  - Arthropathy [Unknown]
  - Dizziness [Unknown]
  - Pain [Unknown]
  - Mobility decreased [Unknown]
  - Dermatitis [Unknown]
  - Nausea [Unknown]
  - Fungal infection [Unknown]
  - Lower respiratory tract infection [Unknown]
  - Peripheral swelling [Unknown]
  - Dyspnoea [Unknown]
